FAERS Safety Report 15318414 (Version 1)
Quarter: 2018Q3

REPORT INFORMATION
  Report Type: Spontaneous
  Country: US (occurrence: US)
  Receive Date: 20180825
  Receipt Date: 20180825
  Transmission Date: 20181010
  Serious: No
  Sender: FDA-Public Use
  Company Number: US-TEVA-2018-US-947098

PATIENT
  Sex: Female

DRUGS (1)
  1. BACITRACIN ZINC, NEOMYCIN, POLYMYXIN B [Suspect]
     Active Substance: BACITRACIN ZINC\NEOMYCIN SULFATE\POLYMYXIN B SULFATE
     Indication: ERYTHEMA
     Dosage: 2 TIMES TOPICALLY UNDER BREAST FOR 1 MONTH
     Route: 061
     Dates: start: 201807, end: 201808

REACTIONS (2)
  - Product use in unapproved indication [Unknown]
  - Application site rash [Recovered/Resolved]
